FAERS Safety Report 4745082-2 (Version None)
Quarter: 2005Q3

REPORT INFORMATION
  Report Type: 
  Country: None (occurrence: None)
  Receive Date: 20050812
  Receipt Date: 20050715
  Transmission Date: 20060218
  Serious: Yes (Other)
  Sender: FDA-Public Use
  Company Number: 216705

PATIENT
  Age: 44 Year
  Sex: Female

DRUGS (8)
  1. RITUXIMAB OR PLACEBO(RITUXIMAB OR PLACEBO) CONC FOR SOLUTION FOR INFUS [Suspect]
     Indication: RHEUMATOID ARTHRITIS
     Dosage: 1000 MG, DAYS 1+15, INTRAVENOUS
     Route: 042
     Dates: start: 20040225, end: 20040310
  2. METHYLPREDNISOLONE (METHYLPREDNISOLONE) [Suspect]
     Indication: RHEUMATOID ARTHRITIS
     Dosage: 100 MG, DAYS 1+15, INTRAVENOUS
     Route: 042
     Dates: start: 20040225, end: 20040310
  3. PREDNISONE [Suspect]
     Indication: RHEUMATOID ARTHRITIS
     Dosage: ORAL
     Route: 048
     Dates: start: 20040226, end: 20040309
  4. FOLIC ACID [Concomitant]
  5. DICLOFENAC SODIUM [Concomitant]
  6. ACETAMINOPHEN [Concomitant]
  7. CHLOROPYRAMINE (CHLOROPYRAMINE HYDROCHLORIDE) [Concomitant]
  8. METHOTREXATE [Concomitant]

REACTIONS (1)
  - ANAPHYLACTOID REACTION [None]
